FAERS Safety Report 11467275 (Version 2)
Quarter: 2015Q3

REPORT INFORMATION
  Report Type: Spontaneous
  Country: JP (occurrence: JP)
  Receive Date: 20150908
  Receipt Date: 20150925
  Transmission Date: 20151125
  Serious: Yes (Other)
  Sender: FDA-Public Use
  Company Number: JP-AMGEN-JPNSP2015091674

PATIENT
  Age: 42 Year
  Sex: Female

DRUGS (8)
  1. FLUOROURACIL. [Concomitant]
     Active Substance: FLUOROURACIL
     Indication: RECTAL CANCER
     Dosage: UNK
     Route: 042
  2. FLUOROURACIL. [Concomitant]
     Active Substance: FLUOROURACIL
     Indication: METASTASES TO LIVER
  3. CALCIUM LEVOFOLINATE [Concomitant]
     Active Substance: LEVOLEUCOVORIN CALCIUM
     Indication: METASTASES TO LIVER
  4. VECTIBIX [Suspect]
     Active Substance: PANITUMUMAB
     Indication: METASTASES TO LIVER
  5. CALCIUM LEVOFOLINATE [Concomitant]
     Active Substance: LEVOLEUCOVORIN CALCIUM
     Indication: RECTAL CANCER
     Dosage: UNK
     Route: 041
  6. OXALIPLATIN. [Concomitant]
     Active Substance: OXALIPLATIN
     Indication: RECTAL CANCER
     Dosage: UNK
     Route: 041
  7. OXALIPLATIN. [Concomitant]
     Active Substance: OXALIPLATIN
     Indication: METASTASES TO LIVER
  8. VECTIBIX [Suspect]
     Active Substance: PANITUMUMAB
     Indication: RECTAL CANCER
     Dosage: UNK
     Route: 041

REACTIONS (2)
  - Febrile neutropenia [Unknown]
  - Skin disorder [Unknown]
